FAERS Safety Report 25094759 (Version 1)
Quarter: 2025Q1

REPORT INFORMATION
  Report Type: Spontaneous
  Country: US (occurrence: None)
  Receive Date: 20250318
  Receipt Date: 20250318
  Transmission Date: 20250408
  Serious: No
  Sender: FDA-CTU
  Company Number: None

PATIENT
  Age: 77 Year
  Sex: Female
  Weight: 74.84 kg

DRUGS (8)
  1. ANASTROZOLE [Suspect]
     Active Substance: ANASTROZOLE
     Dosage: FREQUENCY : DAILY;?
     Route: 048
     Dates: start: 20230919, end: 20241127
  2. LISINOPRIL [Concomitant]
     Active Substance: LISINOPRIL
  3. ATORVASTATIN [Concomitant]
     Active Substance: ATORVASTATIN
  4. OMOPRAZOLE [Concomitant]
  5. TYLENOL [Concomitant]
     Active Substance: ACETAMINOPHEN
  6. IBUPROFEN [Concomitant]
     Active Substance: IBUPROFEN
  7. MINERALS\VITAMINS [Concomitant]
     Active Substance: MINERALS\VITAMINS
  8. CALCIUM CITRATE [Concomitant]
     Active Substance: CALCIUM CITRATE

REACTIONS (13)
  - Therapy cessation [None]
  - Bone pain [None]
  - Pain in extremity [None]
  - Pain in extremity [None]
  - Arthralgia [None]
  - Paraesthesia [None]
  - Hypoaesthesia [None]
  - Trigger finger [None]
  - Tooth fracture [None]
  - Muscular weakness [None]
  - Fall [None]
  - Shoulder fracture [None]
  - Tooth loss [None]

NARRATIVE: CASE EVENT DATE: 20241224
